FAERS Safety Report 25829031 (Version 3)
Quarter: 2025Q4

REPORT INFORMATION
  Report Type: Report from Study
  Country: US (occurrence: US)
  Receive Date: 20250922
  Receipt Date: 20251013
  Transmission Date: 20260118
  Serious: No
  Sender: SANDOZ
  Company Number: US-SANDOZ-SDZ2025US066725

PATIENT
  Age: 9 Year
  Sex: Female

DRUGS (2)
  1. OMNITROPE [Suspect]
     Active Substance: SOMATROPIN
     Indication: Product used for unknown indication
     Dosage: 1 MG OTHER , 6 DAYS /WEEK (STRENGTH 10 MG / 1.5 ML)
     Route: 058
     Dates: start: 20250827
  2. OMNITROPE [Suspect]
     Active Substance: SOMATROPIN
     Indication: Product used for unknown indication
     Dosage: 1 MG OTHER , 6 DAYS /WEEK (STRENGTH 10 MG / 1.5 ML)
     Route: 058
     Dates: start: 20250827

REACTIONS (3)
  - Injection site haemorrhage [Unknown]
  - Injection site bruising [Unknown]
  - Device leakage [Unknown]

NARRATIVE: CASE EVENT DATE: 20250910
